FAERS Safety Report 11002752 (Version 6)
Quarter: 2015Q2

REPORT INFORMATION
  Report Type: Spontaneous
  Country: US (occurrence: US)
  Receive Date: 20150408
  Receipt Date: 20150629
  Transmission Date: 20150821
  Serious: Yes (Life-Threatening, Hospitalization, Other)
  Sender: FDA-Public Use
  Company Number: US-BAYER-2015-088653

PATIENT
  Age: 72 Year
  Sex: Male

DRUGS (3)
  1. PLAVIX [Concomitant]
     Active Substance: CLOPIDOGREL BISULFATE
     Dosage: UNK
  2. BETASERON [Suspect]
     Active Substance: INTERFERON BETA-1B
     Indication: MULTIPLE SCLEROSIS
     Dosage: 0.25 MG, QOD
     Route: 058
     Dates: end: 20150110
  3. AUBAGIO [Suspect]
     Active Substance: TERIFLUNOMIDE

REACTIONS (37)
  - Myocardial infarction [None]
  - Speech disorder [None]
  - Oxygen saturation decreased [None]
  - White blood cell count increased [None]
  - Incoherent [None]
  - Injection site erythema [None]
  - Injection site swelling [None]
  - Gait disturbance [None]
  - Confusional state [None]
  - Cardiac ventricular thrombosis [None]
  - Injection site infection [None]
  - Asthenia [None]
  - Renal failure [None]
  - Abasia [None]
  - Scrotal swelling [None]
  - Gastrointestinal haemorrhage [None]
  - Pyrexia [None]
  - Abdominal rigidity [None]
  - Discomfort [None]
  - Urinary retention [None]
  - Abnormal weight gain [None]
  - Faeces discoloured [None]
  - Heart rate increased [None]
  - Agitation [None]
  - Multiple sclerosis [None]
  - Hearing impaired [None]
  - Injection site cellulitis [None]
  - Weight decreased [None]
  - Lethargy [None]
  - Cardiac failure congestive [None]
  - Dyspnoea [None]
  - White blood cell count decreased [None]
  - Myocardial infarction [None]
  - Acute kidney injury [None]
  - Diarrhoea [None]
  - Haemoglobin decreased [None]
  - Epistaxis [None]

NARRATIVE: CASE EVENT DATE: 2015
